FAERS Safety Report 7458554-7 (Version None)
Quarter: 2011Q2

REPORT INFORMATION
  Report Type: 
  Country: None (occurrence: None)
  Receive Date: 20110503
  Receipt Date: 20110503
  Transmission Date: 20111010
  Serious: No
  Sender: FDA-Public Use
  Company Number: None

PATIENT
  Sex: Male
  Weight: 75 kg

DRUGS (6)
  1. ADVAIR DISKUS 100/50 [Concomitant]
  2. IMODIUM [Concomitant]
  3. ZOFRAN [Concomitant]
  4. COMPAZINE [Concomitant]
  5. CISPLATIN [Suspect]
     Dosage: 149 MG
  6. ETOPOSIDE [Suspect]
     Dosage: 558 MG

REACTIONS (2)
  - HAEMOGLOBIN DECREASED [None]
  - WHITE BLOOD CELL COUNT DECREASED [None]
